FAERS Safety Report 19414667 (Version 1)
Quarter: 2021Q2

REPORT INFORMATION
  Report Type: Spontaneous
  Country: US (occurrence: US)
  Receive Date: 20210615
  Receipt Date: 20210615
  Transmission Date: 20210717
  Serious: Yes (Hospitalization)
  Sender: FDA-Public Use
  Company Number: US-ROCHE-2847377

PATIENT
  Age: 78 Year
  Sex: Male

DRUGS (6)
  1. IMBRUVICA [Suspect]
     Active Substance: IBRUTINIB
     Dosage: (420 MG,1 IN 1 D); DISCONTINUED
     Route: 048
     Dates: start: 20180428
  2. RITUXAN [Suspect]
     Active Substance: RITUXIMAB
     Indication: PRODUCT USED FOR UNKNOWN INDICATION
     Route: 042
  3. VENCLEXTA [Suspect]
     Active Substance: VENETOCLAX
     Indication: CHRONIC LYMPHOCYTIC LEUKAEMIA
     Dosage: 100 MG,1 IN 1 D  ONGOING? YES
     Route: 048
     Dates: start: 20210413
  4. IMBRUVICA [Suspect]
     Active Substance: IBRUTINIB
     Indication: CHRONIC LYMPHOCYTIC LEUKAEMIA
     Dosage: (420 MG,1 IN 1 D); ONGOING? UNKNOWN
     Route: 048
     Dates: start: 20190523, end: 202104
  5. VENCLEXTA [Suspect]
     Active Substance: VENETOCLAX
     Dosage: 400 MG (100 MG,4 IN 1 D) ONGOING? UNKNOWN
     Route: 048
     Dates: start: 20210413
  6. IMBRUVICA [Suspect]
     Active Substance: IBRUTINIB
     Route: 048
     Dates: start: 20170411, end: 20200423

REACTIONS (25)
  - Dry mouth [Not Recovered/Not Resolved]
  - Alanine aminotransferase abnormal [Unknown]
  - Pollakiuria [Recovering/Resolving]
  - Sinus congestion [Recovered/Resolved]
  - Aspartate aminotransferase abnormal [Unknown]
  - Decreased appetite [Unknown]
  - Nausea [Not Recovered/Not Resolved]
  - Haemoglobin decreased [Recovering/Resolving]
  - Rhinorrhoea [Recovered/Resolved]
  - Abdominal pain lower [Recovering/Resolving]
  - Lymphadenopathy [Unknown]
  - Back pain [Recovering/Resolving]
  - Hypohidrosis [Unknown]
  - Dehydration [Not Recovered/Not Resolved]
  - Fatigue [Not Recovered/Not Resolved]
  - Platelet count increased [Recovering/Resolving]
  - Blood lactate dehydrogenase abnormal [Unknown]
  - Weight decreased [Unknown]
  - Muscular weakness [Not Recovered/Not Resolved]
  - White blood cell count increased [Unknown]
  - Myalgia [Not Recovered/Not Resolved]
  - Feeling jittery [Not Recovered/Not Resolved]
  - Emotional distress [Not Recovered/Not Resolved]
  - Drug ineffective [Unknown]
  - Sneezing [Recovered/Resolved]

NARRATIVE: CASE EVENT DATE: 202104
